FAERS Safety Report 8326701-0 (Version None)
Quarter: 2012Q2

REPORT INFORMATION
  Report Type: 
  Country: None (occurrence: None)
  Receive Date: 20120501
  Receipt Date: 20120425
  Transmission Date: 20120825
  Serious: Yes (Other)
  Sender: FDA-Public Use
  Company Number: US-PFIZER INC-2012103163

PATIENT
  Sex: Female
  Weight: 61 kg

DRUGS (4)
  1. LEVOTHYROXINE SODIUM [Suspect]
     Indication: HYPOTHYROIDISM
     Dosage: UNK
  2. CYTOMEL [Suspect]
     Indication: HYPOTHYROIDISM
     Dosage: 25 UG, 8X/DAY
     Dates: start: 20100101
  3. LEVOTHYROXINE SODIUM [Suspect]
     Indication: HYPOTHYROIDISM
     Dosage: 75 UG, DAILY
     Dates: start: 20120423
  4. SYNTHROID [Suspect]
     Indication: HYPOTHYROIDISM
     Dosage: UNK, 2X/DAY
     Dates: start: 20020101, end: 20100101

REACTIONS (15)
  - EYELID OEDEMA [None]
  - JOINT CREPITATION [None]
  - HYPERTENSION [None]
  - HYPERSENSITIVITY [None]
  - SOMNOLENCE [None]
  - URTICARIA [None]
  - ALOPECIA [None]
  - FATIGUE [None]
  - HEART RATE ABNORMAL [None]
  - DRUG INEFFECTIVE [None]
  - PRURITUS GENERALISED [None]
  - BLOOD CHOLESTEROL INCREASED [None]
  - DRY SKIN [None]
  - FIBROMYALGIA [None]
  - WEIGHT FLUCTUATION [None]
